FAERS Safety Report 8699361 (Version 3)
Quarter: 2012Q4

REPORT INFORMATION
  Report Type: 
  Country: TW (occurrence: TW)
  Receive Date: 20120802
  Receipt Date: 20120823
  Transmission Date: 20130627
  Serious: Yes (Hospitalization)
  Sender: FDA-Public Use
  Company Number: TW-ELI_LILLY_AND_COMPANY-TW201207008451

PATIENT
  Age: 80 Year
  Sex: Male

DRUGS (6)
  1. FORTEO [Suspect]
     Dosage: UNK
     Dates: start: 20120721
  2. PLAVIX [Concomitant]
  3. LIPITOR [Concomitant]
  4. DIOVAN [Concomitant]
  5. LEVODOPA [Concomitant]
  6. SENNOSIDE [Concomitant]

REACTIONS (3)
  - Altered state of consciousness [Unknown]
  - Muscular weakness [Unknown]
  - Parkinsonism [Unknown]
